FAERS Safety Report 8177247 (Version 2)
Quarter: 2013Q2

REPORT INFORMATION
  Report Type: Spontaneous
  Country: GB (occurrence: GB)
  Receive Date: 20111012
  Receipt Date: 20130529
  Transmission Date: 20140414
  Serious: Yes (Congenital Anomaly)
  Sender: FDA-Public Use
  Company Number: GB-UCBSA-027943

PATIENT
  Age: 1 Month
  Sex: Female
  Weight: 3.46 kg

DRUGS (5)
  1. CO-CODAMOL [Suspect]
     Indication: PAIN
     Dosage: 30/500 2 TABLETS
     Route: 064
     Dates: start: 201004, end: 20101223
  2. FOLIC ACID [Suspect]
     Indication: PREGNANCY
     Route: 064
     Dates: start: 201004, end: 20101223
  3. OMEPRAZOLE [Suspect]
     Indication: PROPHYLAXIS AGAINST GASTROINTESTINAL ULCER
     Route: 064
     Dates: start: 201004, end: 20101223
  4. HYDROXOCOBALAMIN [Suspect]
     Indication: VITAMIN B12 DEFICIENCY
     Route: 064
     Dates: start: 201004, end: 20101223
  5. LYRICA [Suspect]
     Indication: PAIN
     Route: 064
     Dates: start: 201004, end: 20101223

REACTIONS (2)
  - Developmental hip dysplasia [Unknown]
  - Foetal exposure during pregnancy [Recovered/Resolved]
